FAERS Safety Report 19822522 (Version 1)
Quarter: 2021Q3

REPORT INFORMATION
  Report Type: Report from Study
  Country: JP (occurrence: JP)
  Receive Date: 20210913
  Receipt Date: 20210913
  Transmission Date: 20211014
  Serious: Yes (Hospitalization, Other)
  Sender: FDA-Public Use
  Company Number: JP-TEVA-2021-JP-1933718

PATIENT
  Age: 76 Year
  Sex: Male
  Weight: 62.8 kg

DRUGS (10)
  1. MAGNESIUM OXIDE. [Concomitant]
     Active Substance: MAGNESIUM OXIDE
  2. RASAGILINE MESYLATE. [Suspect]
     Active Substance: RASAGILINE MESYLATE
     Indication: PARKINSON^S DISEASE
     Dosage: 1 MILLIGRAM DAILY;
     Route: 065
     Dates: start: 20190731
  3. FUCIDIN LEO [Concomitant]
     Active Substance: FUSIDATE SODIUM
  4. AMLODIN [Concomitant]
     Active Substance: AMLODIPINE BESYLATE
  5. LEVODOPA [Concomitant]
     Active Substance: LEVODOPA
  6. PRAMIPEXOLE HYDROCHLORIDE MONOHYDRATE [Concomitant]
     Active Substance: PRAMIPEXOLE
  7. SODIUM PICOSULFATE [Concomitant]
     Active Substance: SODIUM PICOSULFATE
  8. AMANTADINE HYDROCHLORIDE. [Concomitant]
     Active Substance: AMANTADINE HYDROCHLORIDE
     Dates: end: 20210215
  9. HIRUDOID [Concomitant]
     Active Substance: GLYCOSAMINOGLYCANS
  10. CANDESARTAN. [Concomitant]
     Active Substance: CANDESARTAN

REACTIONS (6)
  - Dermatophytosis of nail [Recovered/Resolved]
  - Hyperkeratosis [Recovering/Resolving]
  - Abscess limb [Recovering/Resolving]
  - Orthostatic hypotension [Recovered/Resolved]
  - Rhabdomyolysis [Recovering/Resolving]
  - Back pain [Recovered/Resolved]

NARRATIVE: CASE EVENT DATE: 20191226
